FAERS Safety Report 15462791 (Version 1)
Quarter: 2018Q4

REPORT INFORMATION
  Report Type: Spontaneous
  Country: US (occurrence: US)
  Receive Date: 20181004
  Receipt Date: 20181004
  Transmission Date: 20190204
  Serious: Yes (Hospitalization)
  Sender: FDA-Public Use
  Company Number: US-TEVA-2018-US-959142

PATIENT
  Age: 69 Year
  Sex: Female
  Weight: 77 kg

DRUGS (6)
  1. QVAR REDIHALER [Suspect]
     Active Substance: BECLOMETHASONE DIPROPIONATE
     Indication: ASTHMA
     Dosage: 160 MICROGRAM DAILY; TWO PUFFS TWICE DAILY
     Dates: start: 20180723
  2. QVAR [Suspect]
     Active Substance: BECLOMETHASONE DIPROPIONATE
     Indication: BRONCHITIS
     Dosage: FOUR PUFFS TWICE DAILY
  3. QVAR REDIHALER [Suspect]
     Active Substance: BECLOMETHASONE DIPROPIONATE
     Indication: BRONCHITIS
  4. QVAR [Suspect]
     Active Substance: BECLOMETHASONE DIPROPIONATE
     Indication: ASTHMA
     Dosage: THREE PUFFS TWICE DAILY
  5. QVAR [Suspect]
     Active Substance: BECLOMETHASONE DIPROPIONATE
     Indication: SINUSITIS
     Dosage: TWO PUFFS TWICE DAILY
  6. QVAR REDIHALER [Suspect]
     Active Substance: BECLOMETHASONE DIPROPIONATE
     Indication: SINUSITIS

REACTIONS (4)
  - Product use in unapproved indication [Unknown]
  - Device issue [Unknown]
  - Wrong technique in device usage process [Unknown]
  - Cardiac disorder [Unknown]

NARRATIVE: CASE EVENT DATE: 201801
